FAERS Safety Report 18605408 (Version 1)
Quarter: 2020Q4

REPORT INFORMATION
  Report Type: Spontaneous
  Country: US (occurrence: US)
  Receive Date: 20201211
  Receipt Date: 20201211
  Transmission Date: 20210114
  Serious: No
  Sender: FDA-Public Use
  Company Number: US-GLAXOSMITHKLINE-US2020237617

PATIENT
  Age: 64 Year
  Sex: Female

DRUGS (2)
  1. BREO ELLIPTA [Suspect]
     Active Substance: FLUTICASONE FUROATE\VILANTEROL TRIFENATATE
     Indication: ASTHMA
     Dosage: 1 PUFF(S), 1D
     Route: 055
     Dates: start: 202011, end: 2020
  2. WELLBUTRIN [Concomitant]
     Active Substance: BUPROPION HYDROCHLORIDE
     Indication: PRODUCT USED FOR UNKNOWN INDICATION
     Dosage: UNK

REACTIONS (12)
  - Cough [Recovered/Resolved]
  - Product dose omission issue [Unknown]
  - Dyspnoea [Unknown]
  - Insomnia [Not Recovered/Not Resolved]
  - Thyroid disorder [Unknown]
  - Vision blurred [Recovered/Resolved]
  - Depression [Unknown]
  - Sinus headache [Recovered/Resolved]
  - Palpitations [Unknown]
  - Productive cough [Recovered/Resolved]
  - Visual impairment [Recovered/Resolved]
  - Nightmare [Unknown]

NARRATIVE: CASE EVENT DATE: 20201120
